FAERS Safety Report 9410677 (Version 3)
Quarter: 2014Q1

REPORT INFORMATION
  Report Type: Report from Study
  Country: CA (occurrence: CA)
  Receive Date: 20130719
  Receipt Date: 20140318
  Transmission Date: 20141002
  Serious: Yes (Hospitalization)
  Sender: FDA-Public Use
  Company Number: CA-009507513-1204USA02997

PATIENT
  Age: 53 Year
  Sex: Male
  Weight: 91.81 kg

DRUGS (11)
  1. JANUVIA [Suspect]
     Route: 048
  2. AVANDAMET [Suspect]
     Route: 065
  3. GLICLAZIDE [Suspect]
     Route: 065
  4. LEVEMIR [Suspect]
     Route: 058
  5. METOPROLOL [Suspect]
     Route: 065
  6. SUTENT [Suspect]
     Dosage: 50 MG, QD
     Route: 048
  7. ASPIRIN [Concomitant]
  8. AVALIDE [Concomitant]
  9. CADUET [Concomitant]
  10. DIAMICRON [Concomitant]
  11. LISINOPRIL [Concomitant]
     Route: 048

REACTIONS (5)
  - Metabolic acidosis [Recovered/Resolved]
  - Hypoglycaemia [Recovered/Resolved]
  - Blood creatinine increased [Recovered/Resolved]
  - Dehydration [Recovered/Resolved]
  - Vomiting projectile [Recovered/Resolved]
